FAERS Safety Report 8163420-8 (Version None)
Quarter: 2012Q1

REPORT INFORMATION
  Report Type: 
  Country: None (occurrence: None)
  Receive Date: 20120221
  Receipt Date: 20120206
  Transmission Date: 20120608
  Serious: Yes (Hospitalization)
  Sender: FDA-Public Use
  Company Number: 2012PL000029

PATIENT
  Age: 33 Year
  Sex: Female

DRUGS (4)
  1. VALGANCICLOVIR [Concomitant]
  2. AZATHIOPRINE [Suspect]
     Indication: CROHN'S DISEASE
  3. CORTICOSTEROIDS [Concomitant]
  4. GANCICLOVIR [Concomitant]

REACTIONS (4)
  - CYTOMEGALOVIRUS INFECTION [None]
  - HYPERTRIGLYCERIDAEMIA [None]
  - SERUM FERRITIN INCREASED [None]
  - HISTIOCYTOSIS HAEMATOPHAGIC [None]
